FAERS Safety Report 6098585-5 (Version None)
Quarter: 2009Q1

REPORT INFORMATION
  Report Type: 
  Country: None (occurrence: None)
  Receive Date: 20090302
  Receipt Date: 20090219
  Transmission Date: 20090719
  Serious: Yes (Other)
  Sender: FDA-Public Use
  Company Number: CH-BAXTER-2009BH002904

PATIENT
  Age: 33 Year
  Sex: Female

DRUGS (6)
  1. CYCLOPHOSPHAMIDE [Suspect]
     Indication: BREAST CANCER FEMALE
     Route: 041
     Dates: start: 20080828, end: 20081030
  2. EPIRUBICIN [Suspect]
     Indication: BREAST CANCER FEMALE
     Route: 041
     Dates: start: 20080828, end: 20081030
  3. FLUOROURACIL [Suspect]
     Indication: BREAST CANCER FEMALE
     Route: 041
     Dates: start: 20080828, end: 20081030
  4. SOLU-MEDROL [Suspect]
     Indication: BREAST CANCER FEMALE
     Route: 041
     Dates: start: 20080828, end: 20081030
  5. ONDANSETRON [Suspect]
     Indication: PROPHYLAXIS
     Route: 065
     Dates: start: 20080828, end: 20081030
  6. PRIMPERAN [Suspect]
     Indication: PROPHYLAXIS
     Route: 065
     Dates: start: 20080828, end: 20081030

REACTIONS (1)
  - DRUG EXPOSURE DURING PREGNANCY [None]
